FAERS Safety Report 9394369 (Version 1)
Quarter: 2013Q3

REPORT INFORMATION
  Report Type: Report from Study
  Country: LB (occurrence: LB)
  Receive Date: 20130711
  Receipt Date: 20130711
  Transmission Date: 20140515
  Serious: Yes (Death)
  Sender: FDA-Public Use
  Company Number: LB-ROCHE-1246520

PATIENT
  Age: 75 Year
  Sex: Female
  Weight: 63 kg

DRUGS (5)
  1. BEVACIZUMAB [Suspect]
     Indication: COLON CANCER
     Route: 041
     Dates: start: 20130418, end: 20130527
  2. CALCIUM FOLINATE [Concomitant]
     Indication: COLON CANCER
     Route: 041
     Dates: start: 20130418, end: 20130527
  3. ONDANSETRON [Concomitant]
     Route: 041
     Dates: start: 20130418, end: 20130527
  4. IRINOTECAN [Concomitant]
     Indication: COLON CANCER
     Route: 041
     Dates: start: 20130418, end: 20130527
  5. FLUOROURACIL [Concomitant]
     Indication: COLON CANCER
     Route: 041
     Dates: start: 20130418, end: 20130527

REACTIONS (2)
  - Peritonitis [Fatal]
  - Sepsis [Fatal]
